FAERS Safety Report 6385185-2 (Version None)
Quarter: 2009Q4

REPORT INFORMATION
  Report Type: 
  Country: None (occurrence: None)
  Receive Date: 20091002
  Receipt Date: 20090211
  Transmission Date: 20100525
  Serious: No
  Sender: FDA-Public Use
  Company Number: US-ASTRAZENECA-2006UW17701

PATIENT
  Age: 66 Year
  Sex: Female
  Weight: 68 kg

DRUGS (12)
  1. ARIMIDEX [Suspect]
     Indication: BREAST CANCER
     Dosage: UNKNOWN
     Route: 048
     Dates: start: 20060501
  2. PROGRAF [Concomitant]
  3. TOPROL-XL [Concomitant]
     Route: 048
  4. MAGNESIUM OXIDE [Concomitant]
  5. PRAVACHOL [Concomitant]
  6. ZETIA [Concomitant]
  7. NORVASC [Concomitant]
  8. SYNTHROID [Concomitant]
  9. ACTONEL [Concomitant]
  10. PEPCID [Concomitant]
  11. ASPIRIN [Concomitant]
  12. NEXIUM [Concomitant]
     Route: 048

REACTIONS (3)
  - ARTHRALGIA [None]
  - CENTRAL OBESITY [None]
  - GAIT DISTURBANCE [None]
